FAERS Safety Report 11935507 (Version 1)
Quarter: 2016Q1

REPORT INFORMATION
  Report Type: Spontaneous
  Country: US (occurrence: US)
  Receive Date: 20160121
  Receipt Date: 20160121
  Transmission Date: 20160526
  Serious: No
  Sender: FDA-Public Use
  Company Number: US-PFIZER INC-2016009431

PATIENT
  Sex: Female

DRUGS (6)
  1. PROTONIX [Suspect]
     Active Substance: PANTOPRAZOLE SODIUM
     Dosage: UNK
  2. ZOCOR [Suspect]
     Active Substance: SIMVASTATIN
     Dosage: UNK
  3. MINOCYCLINE [Suspect]
     Active Substance: MINOCYCLINE\MINOCYCLINE HYDROCHLORIDE
     Dosage: UNK
  4. NIACIN. [Suspect]
     Active Substance: NIACIN
  5. ACTIVELLA [Suspect]
     Active Substance: ESTRADIOL\NORETHINDRONE ACETATE
     Dosage: UNK
  6. SILICONE [Suspect]
     Active Substance: SILICONE
     Dosage: UNK

REACTIONS (1)
  - Drug hypersensitivity [Unknown]
